FAERS Safety Report 8119797-2 (Version None)
Quarter: 2012Q1

REPORT INFORMATION
  Report Type: 
  Country: None (occurrence: None)
  Receive Date: 20120207
  Receipt Date: 20120127
  Transmission Date: 20120608
  Serious: Yes (Hospitalization, Disabling, Other)
  Sender: FDA-Public Use
  Company Number: US-MYLANLABS-2009S1005495

PATIENT
  Sex: Female

DRUGS (4)
  1. PHENYTOIN SODIUM CAP [Suspect]
     Route: 048
  2. DILANTIN [Suspect]
     Route: 048
  3. PHENYTOIN SODIUM CAP [Suspect]
     Indication: CONVULSION
     Route: 048
     Dates: start: 20020101
  4. DILANTIN [Suspect]
     Indication: CONVULSION
     Route: 048
     Dates: start: 20020101

REACTIONS (11)
  - SCAR [None]
  - STEVENS-JOHNSON SYNDROME [None]
  - DERMATITIS BULLOUS [None]
  - DRUG RASH WITH EOSINOPHILIA AND SYSTEMIC SYMPTOMS [None]
  - SKIN DISORDER [None]
  - ALOPECIA [None]
  - ACUTE GENERALISED EXANTHEMATOUS PUSTULOSIS [None]
  - TOXIC EPIDERMAL NECROLYSIS [None]
  - DRY SKIN [None]
  - GAIT DISTURBANCE [None]
  - ERYTHEMA MULTIFORME [None]
